FAERS Safety Report 16905093 (Version 1)
Quarter: 2019Q4

REPORT INFORMATION
  Report Type: Spontaneous
  Country: IT (occurrence: IT)
  Receive Date: 20191010
  Receipt Date: 20191010
  Transmission Date: 20200122
  Serious: Yes (Other)
  Sender: FDA-Public Use
  Company Number: IT-ASTRAZENECA-2019SF41727

PATIENT
  Sex: Female

DRUGS (1)
  1. OSIMERTINIB. [Suspect]
     Active Substance: OSIMERTINIB
     Indication: NON-SMALL CELL LUNG CANCER
     Route: 048
     Dates: end: 20190930

REACTIONS (4)
  - Metastases to lymph nodes [Unknown]
  - Metastases to central nervous system [Unknown]
  - Metastases to thyroid [Unknown]
  - Malignant neoplasm progression [Not Recovered/Not Resolved]
